FAERS Safety Report 15499917 (Version 8)
Quarter: 2019Q1

REPORT INFORMATION
  Report Type: Spontaneous
  Country: PL (occurrence: PL)
  Receive Date: 20181015
  Receipt Date: 20190227
  Transmission Date: 20190417
  Serious: Yes (Hospitalization, Other)
  Sender: FDA-Public Use
  Company Number: PHHY2018PL122582

PATIENT
  Age: 70 Year
  Sex: Male

DRUGS (16)
  1. DULOXETINE. [Interacting]
     Active Substance: DULOXETINE
     Dosage: 90 MG, QD
     Route: 065
  2. CIPROFLOXACIN. [Interacting]
     Active Substance: CIPROFLOXACIN
     Dosage: 500 MG, QD
     Route: 048
  3. DABIGATRAN [Concomitant]
     Active Substance: DABIGATRAN
     Indication: PRODUCT USED FOR UNKNOWN INDICATION
     Dosage: 150 MG, BID
     Route: 065
  4. DABIGATRAN [Concomitant]
     Active Substance: DABIGATRAN
     Dosage: 300 MG, QD
     Route: 065
  5. TAMSULOSIN [Concomitant]
     Active Substance: TAMSULOSIN
     Indication: PRODUCT USED FOR UNKNOWN INDICATION
     Dosage: 0.4 MG, QD
     Route: 065
  6. METFORMIN [Concomitant]
     Active Substance: METFORMIN HYDROCHLORIDE
     Indication: PRODUCT USED FOR UNKNOWN INDICATION
     Dosage: 1000 MG, BID
     Route: 065
  7. ALPHA LIPOIC ACID [Concomitant]
     Active Substance: .ALPHA.-LIPOIC ACID
     Indication: PRODUCT USED FOR UNKNOWN INDICATION
     Dosage: 600 MG, QD
     Route: 065
  8. METOPROLOL. [Interacting]
     Active Substance: METOPROLOL
     Dosage: 25 MG, QD
     Route: 065
  9. QUETIAPINE. [Interacting]
     Active Substance: QUETIAPINE
     Indication: DEPRESSION
     Dosage: 1 X 50 MG, TAKEN AT BED TIME
     Route: 048
  10. CIPROFLOXACIN. [Interacting]
     Active Substance: CIPROFLOXACIN
     Indication: PROSTATITIS
     Dosage: 500 MG, BID
     Route: 048
  11. DIGOXIN. [Concomitant]
     Active Substance: DIGOXIN
     Indication: PRODUCT USED FOR UNKNOWN INDICATION
     Dosage: 0.1 MG, QD
     Route: 065
  12. METOPROLOL. [Suspect]
     Active Substance: METOPROLOL
     Indication: PRODUCT USED FOR UNKNOWN INDICATION
     Dosage: 50 MG, BID
     Route: 065
  13. QUETIAPINE. [Interacting]
     Active Substance: QUETIAPINE
     Indication: SLEEP DISORDER
  14. CIPROFLOXACIN. [Interacting]
     Active Substance: CIPROFLOXACIN
     Dosage: 1000 MG, QD
     Route: 048
  15. QUETIAPINE. [Interacting]
     Active Substance: QUETIAPINE
     Indication: INSOMNIA
  16. DULOXETINE. [Interacting]
     Active Substance: DULOXETINE
     Indication: DIABETIC NEUROPATHY
     Dosage: 60 MG, TAKEN IN THE MORNING
     Route: 065

REACTIONS (14)
  - Off label use [Recovered/Resolved]
  - Drug interaction [Recovered/Resolved]
  - Toxicity to various agents [Recovered/Resolved]
  - Anxiety [Recovered/Resolved]
  - Diplopia [Recovered/Resolved]
  - Syncope [Recovered/Resolved]
  - Headache [Recovered/Resolved]
  - Bradycardia [Recovered/Resolved]
  - Tremor [Recovered/Resolved]
  - Nausea [Recovered/Resolved]
  - Urinary retention [Recovered/Resolved]
  - Dizziness [Recovered/Resolved]
  - Pain [Recovered/Resolved]
  - Yawning [Recovered/Resolved]
